FAERS Safety Report 6498813-8 (Version None)
Quarter: 2009Q4

REPORT INFORMATION
  Report Type: 
  Country: None (occurrence: None)
  Receive Date: 20091127
  Receipt Date: 20081001
  Transmission Date: 20100525
  Serious: No
  Sender: FDA-Public Use
  Company Number: 279986

PATIENT
  Age: 37 Year
  Sex: Male

DRUGS (1)
  1. NOVOLOG [Suspect]
     Indication: INSULIN-REQUIRING TYPE 2 DIABETES MELLITUS
     Dosage: 4-6 LU SLIDING SCALE, QD, SUBCUTANEOUS
     Route: 058
     Dates: start: 20080921

REACTIONS (2)
  - BLOOD GLUCOSE INCREASED [None]
  - INJECTION SITE HAEMORRHAGE [None]
